FAERS Safety Report 25871772 (Version 1)
Quarter: 2025Q4

REPORT INFORMATION
  Report Type: Spontaneous
  Country: US (occurrence: US)
  Receive Date: 20251001
  Receipt Date: 20251001
  Transmission Date: 20260118
  Serious: Yes (Hospitalization)
  Sender: MERCK SHARP & DOHME LLC
  Company Number: US-009507513-2333723

PATIENT
  Sex: Female

DRUGS (4)
  1. SOTATERCEPT [Suspect]
     Active Substance: SOTATERCEPT
     Indication: Pulmonary arterial hypertension
     Dosage: 1 INJECTION SUBCUTANEOUSLY EVERY THREE WEEKS
     Route: 058
  2. SOTATERCEPT [Suspect]
     Active Substance: SOTATERCEPT
     Dosage: 1 INJECTION SUBCUTANEOUSLY EVERY THREE WEEKS
     Route: 058
  3. SOTATERCEPT [Suspect]
     Active Substance: SOTATERCEPT
  4. SOTATERCEPT [Suspect]
     Active Substance: SOTATERCEPT

REACTIONS (1)
  - Viral infection [Unknown]
